FAERS Safety Report 14270001 (Version 1)
Quarter: 2017Q4

REPORT INFORMATION
  Report Type: Spontaneous
  Country: US (occurrence: US)
  Receive Date: 20171211
  Receipt Date: 20171211
  Transmission Date: 20180321
  Serious: Yes (Hospitalization, Disabling)
  Sender: FDA-Public Use
  Company Number: US-OTSUKA-2015_017980

PATIENT
  Sex: Female

DRUGS (1)
  1. ABILIFY [Suspect]
     Active Substance: ARIPIPRAZOLE
     Indication: PRODUCT USED FOR UNKNOWN INDICATION
     Dosage: 5 MG, UNK
     Route: 065
     Dates: end: 20151223

REACTIONS (6)
  - Crying [Unknown]
  - Depression [Unknown]
  - Social avoidant behaviour [Unknown]
  - Anxiety [Unknown]
  - Intervertebral disc disorder [Unknown]
  - Fatigue [Unknown]
